FAERS Safety Report 13835793 (Version 2)
Quarter: 2017Q3

REPORT INFORMATION
  Report Type: Spontaneous
  Country: US (occurrence: US)
  Receive Date: 20170804
  Receipt Date: 20170904
  Transmission Date: 20171127
  Serious: No
  Sender: FDA-Public Use
  Company Number: US-TEVA-793204ACC

PATIENT
  Age: 38 Year

DRUGS (1)
  1. PARAGARD T 380A [Suspect]
     Active Substance: COPPER
     Route: 065

REACTIONS (2)
  - Expired device used [Unknown]
  - Device breakage [Recovering/Resolving]

NARRATIVE: CASE EVENT DATE: 20170522
